FAERS Safety Report 7504818-8 (Version None)
Quarter: 2011Q2

REPORT INFORMATION
  Report Type: 
  Country: None (occurrence: None)
  Receive Date: 20110525
  Receipt Date: 20110222
  Transmission Date: 20111010
  Serious: No
  Sender: FDA-Public Use
  Company Number: US-AMGEN-USASP2010005735

PATIENT
  Age: 51 Year
  Sex: Female

DRUGS (3)
  1. PROCRIT [Suspect]
     Indication: PRODUCT USED FOR UNKNOWN INDICATION
     Dosage: UNK
  2. ARANESP [Suspect]
     Dosage: 60 A?G, Q2WK
  3. ARANESP [Suspect]
     Indication: NEPHROGENIC ANAEMIA
     Dosage: 150 A?G, Q2WK
     Dates: start: 20101024

REACTIONS (7)
  - PHOTOSENSITIVITY REACTION [None]
  - SKIN DISCOLOURATION [None]
  - PRURITUS [None]
  - ACNE [None]
  - SKIN EXFOLIATION [None]
  - DANDRUFF [None]
  - RASH [None]
